FAERS Safety Report 9540287 (Version 2)
Quarter: 2013Q4

REPORT INFORMATION
  Report Type: Report from Study
  Country: US (occurrence: US)
  Receive Date: 20130920
  Receipt Date: 20131016
  Transmission Date: 20140711
  Serious: No
  Sender: FDA-Public Use
  Company Number: US-US-EMD SERONO, INC.-7237731

PATIENT
  Age: 52 Year
  Sex: Female

DRUGS (3)
  1. REBIF [Suspect]
     Indication: MULTIPLE SCLEROSIS
     Route: 058
     Dates: start: 20110228
  2. IMITREX                            /01044801/ [Concomitant]
     Indication: MIGRAINE
  3. NEURONTIN [Concomitant]
     Indication: MIGRAINE

REACTIONS (8)
  - Fall [Unknown]
  - Laceration [Unknown]
  - Dysarthria [Not Recovered/Not Resolved]
  - Mood altered [Not Recovered/Not Resolved]
  - Anger [Not Recovered/Not Resolved]
  - Hypoaesthesia [Unknown]
  - Musculoskeletal pain [Not Recovered/Not Resolved]
  - Depressed mood [Not Recovered/Not Resolved]
